FAERS Safety Report 21408520 (Version 1)
Quarter: 2022Q4

REPORT INFORMATION
  Report Type: Spontaneous
  Country: CH (occurrence: CH)
  Receive Date: 20221004
  Receipt Date: 20221004
  Transmission Date: 20230112
  Serious: Yes (Other)
  Sender: FDA-Public Use
  Company Number: None

PATIENT
  Age: 91 Year
  Sex: Female

DRUGS (18)
  1. PREDNISONE [Suspect]
     Active Substance: PREDNISONE
     Dosage: 5MG QD
     Dates: start: 20220810, end: 20220812
  2. HYDROCHLOROTHIAZIDE\VALSARTAN [Suspect]
     Active Substance: HYDROCHLOROTHIAZIDE\VALSARTAN
     Dates: end: 20220812
  3. HYDROCHLOROTHIAZIDE\VALSARTAN [Suspect]
     Active Substance: HYDROCHLOROTHIAZIDE\VALSARTAN
     Dosage: UNK
     Dates: start: 20220816, end: 20220822
  4. ESOMEPRAZOLE MAGNESIUM [Suspect]
     Active Substance: ESOMEPRAZOLE MAGNESIUM
     Dosage: 20MG QD
     Dates: end: 20220823
  5. ESOMEPRAZOLE MAGNESIUM [Suspect]
     Active Substance: ESOMEPRAZOLE MAGNESIUM
     Dosage: 40 MG, QD
     Dates: start: 20220824, end: 20220901
  6. IBUPROFEN [Suspect]
     Active Substance: IBUPROFEN
     Dosage: 600MG 12H
     Dates: end: 20220812
  7. DIETARY SUPPLEMENT\MINERALS\VITAMINS [Suspect]
     Active Substance: DIETARY SUPPLEMENT\MINERALS\VITAMINS
     Dates: end: 20220812
  8. METAMUCIL [Suspect]
     Active Substance: PLANTAGO SEED
     Dosage: 1DF QD
     Dates: end: 20220812
  9. MORPHINE HYDROCHLORIDE [Suspect]
     Active Substance: MORPHINE HYDROCHLORIDE
     Dates: start: 20220812, end: 20220827
  10. ENOXAPARIN SODIUM [Suspect]
     Active Substance: ENOXAPARIN SODIUM
     Dosage: 40MG QD
     Dates: start: 20220813, end: 20220902
  11. ACETAMINOPHEN [Suspect]
     Active Substance: ACETAMINOPHEN
     Dosage: 1G 12H
     Dates: end: 20220812
  12. ACETAMINOPHEN [Suspect]
     Active Substance: ACETAMINOPHEN
     Dosage: 1 G, QD
     Dates: start: 20220815, end: 20220816
  13. PREGABALIN [Suspect]
     Active Substance: PREGABALIN
     Dosage: 25MG 12H
     Dates: end: 20220819
  14. PREGABALIN [Suspect]
     Active Substance: PREGABALIN
     Dosage: 50 MG, BID
     Dates: start: 20220820
  15. CALCIUM\CHOLECALCIFEROL [Concomitant]
     Active Substance: CALCIUM\CHOLECALCIFEROL
     Dosage: UNK
     Dates: end: 20220812
  16. CALCIUM\CHOLECALCIFEROL [Concomitant]
     Active Substance: CALCIUM\CHOLECALCIFEROL
     Dosage: UNK
     Dates: start: 202209
  17. ZOLPIDEM TARTRATE [Concomitant]
     Active Substance: ZOLPIDEM TARTRATE
     Dates: start: 20220810, end: 20220812
  18. DIOVAN [Concomitant]
     Active Substance: VALSARTAN
     Dosage: 160MG QD
     Dates: start: 20220823

REACTIONS (1)
  - Cholestasis [Not Recovered/Not Resolved]

NARRATIVE: CASE EVENT DATE: 20220812
